APPROVED DRUG PRODUCT: ENZALUTAMIDE
Active Ingredient: ENZALUTAMIDE
Strength: 40MG
Dosage Form/Route: CAPSULE;ORAL
Application: A209667 | Product #001
Applicant: ZYDUS PHARMACEUTICALS USA INC
Approved: Sep 26, 2024 | RLD: No | RS: No | Type: DISCN